FAERS Safety Report 9491245 (Version 1)
Quarter: 2013Q1

REPORT INFORMATION
  Report Type: Not Available
  Country: US (occurrence: US)
  Receive Date: 20120619
  Receipt Date: 20120619
  Transmission Date: 20140127
  Serious: No
  Sender: FDA-Public Use
  Company Number: US-LUNDBECK-DKLU1078002

PATIENT
  Sex: Male

DRUGS (1)
  1. SABRIL     (TABLET) [Suspect]
     Indication: MEDICATION ERROR
     Route: 048
     Dates: start: 20120328, end: 20120328

REACTIONS (1)
  - Accidental exposure to product [Unknown]
